FAERS Safety Report 9259230 (Version 1)
Quarter: 2013Q2

REPORT INFORMATION
  Report Type: Spontaneous
  Country: US (occurrence: US)
  Receive Date: 20130426
  Receipt Date: 20130426
  Transmission Date: 20140414
  Serious: No
  Sender: FDA-Public Use
  Company Number: US-ASTRAZENECA-2013SE23570

PATIENT
  Age: 71 Year
  Sex: Female
  Weight: 54.4 kg

DRUGS (12)
  1. PULMICORT RESPULES [Suspect]
     Indication: CHRONIC OBSTRUCTIVE PULMONARY DISEASE
     Route: 055
  2. OMEPRAZOLE [Suspect]
     Route: 048
  3. LEVALBUTEROL [Suspect]
     Dosage: 15MG/12 ML
     Route: 065
  4. ALPRAZOLAM [Concomitant]
     Indication: ANXIETY
  5. SPIRIVA [Concomitant]
     Indication: CHRONIC OBSTRUCTIVE PULMONARY DISEASE
  6. FORADIL [Concomitant]
     Indication: CHRONIC OBSTRUCTIVE PULMONARY DISEASE
  7. FLOVENT [Concomitant]
     Indication: CHRONIC OBSTRUCTIVE PULMONARY DISEASE
  8. GABAPENTIN [Concomitant]
     Indication: RESTLESS LEGS SYNDROME
  9. SIMVASTATIN [Concomitant]
     Indication: BLOOD CHOLESTEROL
  10. TERBINAFINE HCL [Concomitant]
     Indication: ONYCHOMYCOSIS
  11. EXELON PATCH [Concomitant]
     Indication: DEMENTIA ALZHEIMER^S TYPE
  12. VITAMIN B12 [Concomitant]
     Indication: VITAMIN SUPPLEMENTATION

REACTIONS (8)
  - Palpitations [Unknown]
  - Heart rate increased [Unknown]
  - Hyperventilation [Unknown]
  - Tremor [Unknown]
  - Feeling hot [Unknown]
  - Dizziness [Unknown]
  - Off label use [Unknown]
  - Intentional drug misuse [Unknown]
